FAERS Safety Report 5722516-8 (Version None)
Quarter: 2008Q2

REPORT INFORMATION
  Report Type: 
  Country: None (occurrence: None)
  Receive Date: 20080429
  Receipt Date: 20070802
  Transmission Date: 20081010
  Serious: No
  Sender: FDA-Public Use
  Company Number: US-ASTRAZENECA-2007UW18579

PATIENT
  Age: 75 Year
  Sex: Male
  Weight: 79.8 kg

DRUGS (2)
  1. NEXIUM [Suspect]
     Indication: STOMACH DISCOMFORT
     Route: 048
  2. NEXIUM [Suspect]
     Indication: DIARRHOEA
     Route: 048

REACTIONS (2)
  - BLOOD CREATININE INCREASED [None]
  - BLOOD UREA INCREASED [None]
